FAERS Safety Report 20465590 (Version 2)
Quarter: 2022Q1

REPORT INFORMATION
  Report Type: Spontaneous
  Country: US (occurrence: US)
  Receive Date: 20220212
  Receipt Date: 20220323
  Transmission Date: 20220423
  Serious: Yes (Other)
  Sender: FDA-Public Use
  Company Number: US-BRISTOL-MYERS SQUIBB COMPANY-BMS-2022-020811

PATIENT
  Age: 60 Year
  Sex: Male

DRUGS (1)
  1. SPRYCEL [Suspect]
     Active Substance: DASATINIB
     Indication: Chronic myeloid leukaemia
     Dosage: 100 MILLIGRAM, QD
     Route: 048
     Dates: start: 20220207

REACTIONS (5)
  - Pulmonary oedema [Recovered/Resolved]
  - Nausea [Unknown]
  - Vomiting [Unknown]
  - Restlessness [Unknown]
  - Sleep talking [Unknown]

NARRATIVE: CASE EVENT DATE: 20220207
